FAERS Safety Report 15166085 (Version 1)
Quarter: 2018Q3

REPORT INFORMATION
  Report Type: Spontaneous
  Country: US (occurrence: US)
  Receive Date: 20180719
  Receipt Date: 20180719
  Transmission Date: 20181010
  Serious: No
  Sender: FDA-Public Use
  Company Number: US-SA-2018SA152942

PATIENT
  Sex: Female

DRUGS (1)
  1. DULCOEASE [Suspect]
     Active Substance: DOCUSATE SODIUM

REACTIONS (1)
  - Constipation [Unknown]
